FAERS Safety Report 6683289-8 (Version None)
Quarter: 2010Q2

REPORT INFORMATION
  Report Type: 
  Country: None (occurrence: None)
  Receive Date: 20100415
  Receipt Date: 20100406
  Transmission Date: 20101027
  Serious: Yes (Hospitalization, Other)
  Sender: FDA-Public Use
  Company Number: BR-PFIZER INC-2010043251

PATIENT
  Age: 50 Year
  Sex: Male
  Weight: 91 kg

DRUGS (4)
  1. GEODON [Suspect]
     Indication: DEPRESSION
     Dosage: 80 MG, 2X/DAY (EVERY 12 HOURS)
     Route: 048
     Dates: start: 20100330
  2. GEODON [Suspect]
     Indication: NERVOUSNESS
  3. FLUOXETINE [Concomitant]
     Indication: DEPRESSION
     Dosage: UNK
  4. FLUOXETINE [Concomitant]
     Indication: NERVOUSNESS

REACTIONS (7)
  - DYSKINESIA [None]
  - FEELING HOT [None]
  - FORMICATION [None]
  - MALAISE [None]
  - NAUSEA [None]
  - POOR QUALITY SLEEP [None]
  - VOMITING [None]
